FAERS Safety Report 21251361 (Version 1)
Quarter: 2022Q3

REPORT INFORMATION
  Report Type: Spontaneous
  Country: US (occurrence: US)
  Receive Date: 20220825
  Receipt Date: 20220825
  Transmission Date: 20221027
  Serious: No
  Sender: FDA-Public Use
  Company Number: US-SUN PHARMACEUTICAL INDUSTRIES LTD-2022R1-347505

PATIENT

DRUGS (2)
  1. ABSORICA LD [Suspect]
     Active Substance: ISOTRETINOIN
     Indication: Product used for unknown indication
     Dosage: 32 MILLIGRAM
     Route: 065
  2. ABSORICA LD [Suspect]
     Active Substance: ISOTRETINOIN
     Dosage: 8 MILLIGRAM
     Route: 065

REACTIONS (1)
  - Arthralgia [Unknown]
